FAERS Safety Report 11221021 (Version 1)
Quarter: 2015Q2

REPORT INFORMATION
  Report Type: Spontaneous
  Country: US (occurrence: None)
  Receive Date: 20150625
  Receipt Date: 20150625
  Transmission Date: 20150821
  Serious: No
  Sender: FDA-Public Use
  Company Number: None

PATIENT
  Age: 56 Year
  Sex: Female
  Weight: 56.7 kg

DRUGS (5)
  1. TOVIAZ [Concomitant]
     Active Substance: FESOTERODINE FUMARATE
  2. VITAMIN D [Concomitant]
     Active Substance: CHOLECALCIFEROL
  3. CENTRUM SENIOR [Concomitant]
  4. CALCIUM [Concomitant]
     Active Substance: CALCIUM
  5. ESTRACE [Suspect]
     Active Substance: ESTRADIOL

REACTIONS (3)
  - Device issue [None]
  - Product quality issue [None]
  - Product contamination [None]

NARRATIVE: CASE EVENT DATE: 20131001
